FAERS Safety Report 7744798-3 (Version None)
Quarter: 2011Q3

REPORT INFORMATION
  Report Type: 
  Country: None (occurrence: None)
  Receive Date: 20110912
  Receipt Date: 20110912
  Transmission Date: 20111222
  Serious: Yes (Disabling)
  Sender: FDA-Public Use
  Company Number: None

PATIENT
  Sex: Female

DRUGS (1)
  1. XARELTO [Suspect]
     Indication: KNEE ARTHROPLASTY
     Dosage: 10 MG
     Route: 048
     Dates: start: 20110807, end: 20110817

REACTIONS (1)
  - HAEMOGLOBIN DECREASED [None]
